FAERS Safety Report 6818572-6 (Version None)
Quarter: 2010Q3

REPORT INFORMATION
  Report Type: 
  Country: None (occurrence: None)
  Receive Date: 20100706
  Receipt Date: 20100625
  Transmission Date: 20110219
  Serious: Yes (Other)
  Sender: FDA-Public Use
  Company Number: FR-GILEAD-2010-0030070

PATIENT
  Sex: Female
  Weight: 53 kg

DRUGS (7)
  1. TRUVADA [Suspect]
     Indication: HIV INFECTION
     Dates: start: 20060213
  2. EFAVIRENZ [Concomitant]
     Dates: start: 20060701
  3. REYATAZ [Concomitant]
     Dates: start: 20080401
  4. NORVIR [Concomitant]
     Dates: start: 20080401
  5. AMLOR [Concomitant]
  6. ADALAT [Concomitant]
     Indication: HYPERTENSION
     Dates: start: 20080101
  7. TRANDATE [Concomitant]
     Indication: HYPERTENSION
     Dates: start: 20080101

REACTIONS (5)
  - ABORTION SPONTANEOUS [None]
  - ANAEMIA [None]
  - CAESAREAN SECTION [None]
  - DRUG EXPOSURE DURING PREGNANCY [None]
  - PREGNANCY [None]
